FAERS Safety Report 4437629-0 (Version None)
Quarter: 2004Q3

REPORT INFORMATION
  Report Type: 
  Country: None (occurrence: None)
  Receive Date: 20040831
  Receipt Date: 20040225
  Transmission Date: 20050211
  Serious: Yes (Death, Hospitalization)
  Sender: FDA-Public Use
  Company Number: PHNU2004DE01009

PATIENT
  Age: 56 Year
  Sex: Female
  Weight: 60 kg

DRUGS (3)
  1. GLEEVEC [Suspect]
     Indication: GASTROINTESTINAL STROMAL TUMOUR
     Dosage: 400MG/DAY
     Route: 048
     Dates: start: 20020901, end: 20030201
  2. GLEEVEC [Suspect]
     Dosage: 300MG/DAY
     Route: 048
     Dates: start: 20030201, end: 20031001
  3. GLEEVEC [Suspect]
     Dosage: 600MG/DAY
     Route: 048
     Dates: start: 20031001, end: 20040101

REACTIONS (13)
  - ABDOMINAL OPERATION [None]
  - BIOPSY BONE MARROW ABNORMAL [None]
  - BONE MARROW DEPRESSION [None]
  - COAGULOPATHY [None]
  - CONDITION AGGRAVATED [None]
  - DRUG INTERACTION [None]
  - FLUID RETENTION [None]
  - HAEMOGLOBIN DECREASED [None]
  - ILEUS [None]
  - LEUKOPENIA [None]
  - SEPSIS [None]
  - THROMBOCYTOPENIA [None]
  - TUMOUR NECROSIS [None]
